FAERS Safety Report 4499698-1 (Version None)
Quarter: 2004Q4

REPORT INFORMATION
  Report Type: 
  Country: None (occurrence: None)
  Receive Date: 20041108
  Receipt Date: 20041029
  Transmission Date: 20050328
  Serious: Yes (Death, Hospitalization, Other)
  Sender: FDA-Public Use
  Company Number: STA-AE-04-MTX-367

PATIENT
  Age: 68 Year
  Sex: Female

DRUGS (12)
  1. RHEUMATREX [Suspect]
     Indication: RHEUMATOID ARTHRITIS
     Dosage: 6 MG 1 X PER 1 WEEK, ORAL
     Route: 048
     Dates: start: 20040407, end: 20040616
  2. RHEUMATREX [Suspect]
     Dosage: 12 1 X PER 2 DAY, ORAL
     Route: 048
     Dates: start: 20040728, end: 20040730
  3. RHEUMATREX [Suspect]
     Dosage: 2 MG 1 X PER 1 WK, ORAL
     Route: 048
     Dates: start: 20040804, end: 20040804
  4. FLUTIDINE (FLUTICASONE PROPIONATE) [Concomitant]
  5. INDACIN (INDOMETACIN) [Concomitant]
  6. LEVOTHYROXINE SODIUM [Concomitant]
  7. PARIET (RABEPRAZOLE) [Concomitant]
  8. PREDNISOLONE [Concomitant]
  9. CARBENIN (BETAMIPRON/PANIPENEM) [Concomitant]
  10. UNASYN [Concomitant]
  11. MINOCYCLINE HCL [Concomitant]
  12. MEROPEN (MEROPENEM) [Concomitant]

REACTIONS (14)
  - ACCIDENTAL OVERDOSE [None]
  - ANOREXIA [None]
  - BONE MARROW DEPRESSION [None]
  - CARDIAC FAILURE [None]
  - CONDITION AGGRAVATED [None]
  - DEHYDRATION [None]
  - DIARRHOEA [None]
  - INFECTION [None]
  - MALAISE [None]
  - MEDICATION ERROR [None]
  - NAUSEA [None]
  - RENAL FAILURE ACUTE [None]
  - RESPIRATORY FAILURE [None]
  - RHEUMATOID ARTHRITIS [None]
